FAERS Safety Report 13544445 (Version 1)
Quarter: 2017Q2

REPORT INFORMATION
  Report Type: Other
  Country: SI (occurrence: SI)
  Receive Date: 20170515
  Receipt Date: 20170515
  Transmission Date: 20170830
  Serious: Yes (Hospitalization)
  Sender: FDA-Public Use
  Company Number: SI-HETERO LABS LTD-2020729

PATIENT
  Age: 19 Year
  Sex: Female

DRUGS (3)
  1. CITALOPRAM [Suspect]
     Active Substance: CITALOPRAM HYDROBROMIDE
     Indication: PRODUCT USED FOR UNKNOWN INDICATION
  2. BROMAZEPAM [Suspect]
     Active Substance: BROMAZEPAM
  3. QUETIAPINE. [Suspect]
     Active Substance: QUETIAPINE

REACTIONS (3)
  - Epilepsy [Recovering/Resolving]
  - Drug interaction [Recovered/Resolved]
  - Ventricular tachycardia [Recovering/Resolving]
